FAERS Safety Report 22220010 (Version 1)
Quarter: 2023Q2

REPORT INFORMATION
  Report Type: Spontaneous
  Country: CN (occurrence: CN)
  Receive Date: 20230417
  Receipt Date: 20230417
  Transmission Date: 20230722
  Serious: Yes (Other)
  Sender: FDA-Public Use
  Company Number: CN-AMNEAL PHARMACEUTICALS-2023-AMRX-01245

PATIENT
  Age: 45 Year
  Sex: Male

DRUGS (1)
  1. DIVALPROEX SODIUM [Suspect]
     Active Substance: DIVALPROEX SODIUM
     Indication: Epilepsy
     Dosage: 800 MG DISSOLVED IN 0.9% SODIUM CHLORIDE INJECTION 8 ML,  CONTINUOUSLY PUMPED AT A SPEED OF 0.6 ML/H
     Route: 042

REACTIONS (3)
  - Hyperlactacidaemia [Recovered/Resolved]
  - Metabolic acidosis [Recovered/Resolved]
  - Coma [Recovered/Resolved]
